FAERS Safety Report 8239946-5 (Version None)
Quarter: 2012Q1

REPORT INFORMATION
  Report Type: 
  Country: None (occurrence: None)
  Receive Date: 20120328
  Receipt Date: 20120327
  Transmission Date: 20120608
  Serious: No
  Sender: FDA-Public Use
  Company Number: US-PFIZER INC-2012078729

PATIENT
  Sex: Female
  Weight: 85.714 kg

DRUGS (5)
  1. SIMVASTATIN [Concomitant]
     Indication: BLOOD CHOLESTEROL ABNORMAL
     Dosage: 20 MG, DAILY
  2. RANITIDINE [Concomitant]
     Indication: GASTROOESOPHAGEAL REFLUX DISEASE
     Dosage: 150 MG, 2X/DAY
  3. AMITRIPTYLINE [Concomitant]
     Indication: INSOMNIA
     Dosage: 100 MG, DAILY
  4. ROZEREM [Concomitant]
     Indication: INSOMNIA
     Dosage: 8 MG, DAILY
  5. XANAX [Suspect]
     Indication: ANXIETY
     Dosage: 0.5 MG, 2X/DAY
     Route: 048

REACTIONS (2)
  - DRY MOUTH [None]
  - LUNG DISORDER [None]
